FAERS Safety Report 4551229-3 (Version None)
Quarter: 2005Q1

REPORT INFORMATION
  Report Type: 
  Country: None (occurrence: None)
  Receive Date: 20050113
  Receipt Date: 20050104
  Transmission Date: 20050727
  Serious: Yes (Hospitalization)
  Sender: FDA-Public Use
  Company Number: FR-BRISTOL-MYERS SQUIBB COMPANY-12815270

PATIENT
  Age: 52 Year
  Sex: Male

DRUGS (5)
  1. FUNGIZONE [Suspect]
     Indication: INFECTION PARASITIC
     Route: 048
     Dates: start: 20030701, end: 20030719
  2. CELEBREX [Suspect]
     Indication: OSTEOARTHRITIS
     Route: 048
     Dates: start: 20030708, end: 20030719
  3. TRAMADOL HCL [Concomitant]
     Dates: start: 20020101
  4. DI-ANTALVIC [Concomitant]
     Dates: start: 20020101
  5. DYSALFA [Concomitant]
     Dates: start: 20030501

REACTIONS (4)
  - PRURITUS [None]
  - RASH MACULO-PAPULAR [None]
  - RASH PUSTULAR [None]
  - STAPHYLOCOCCAL INFECTION [None]
